FAERS Safety Report 7265637-3 (Version None)
Quarter: 2011Q1

REPORT INFORMATION
  Report Type: 
  Country: None (occurrence: None)
  Receive Date: 20110131
  Receipt Date: 20110119
  Transmission Date: 20110831
  Serious: Yes (Other)
  Sender: FDA-Public Use
  Company Number: US-BAYER-201029870NA

PATIENT
  Sex: Female
  Weight: 68.934 kg

DRUGS (2)
  1. VITAMIN B-12 [Suspect]
     Dosage: DAILY DOSE 500 MG
     Dates: start: 20100818
  2. MIRENA [Suspect]
     Indication: CONTRACEPTION
     Dosage: FREQUENCY CONTINUOUS
     Route: 015
     Dates: start: 20090301

REACTIONS (8)
  - INTERVERTEBRAL DISC PROTRUSION [None]
  - PARAESTHESIA [None]
  - FALL [None]
  - DYSPNOEA [None]
  - BLOOD PRESSURE DECREASED [None]
  - PROCEDURAL PAIN [None]
  - DIZZINESS [None]
  - HYPOAESTHESIA [None]
